FAERS Safety Report 25234225 (Version 1)
Quarter: 2025Q2

REPORT INFORMATION
  Report Type: Spontaneous
  Country: US (occurrence: US)
  Receive Date: 20250424
  Receipt Date: 20250424
  Transmission Date: 20250717
  Serious: No
  Sender: PHARMACOSMOS A/S
  Company Number: US-NEBO-691558

PATIENT
  Sex: Female

DRUGS (1)
  1. MONOFERRIC [Suspect]
     Active Substance: FERRIC DERISOMALTOSE
     Indication: Product used for unknown indication
     Dates: start: 202411, end: 202411

REACTIONS (2)
  - Rash [Unknown]
  - Hyperventilation [Unknown]

NARRATIVE: CASE EVENT DATE: 20241101
